FAERS Safety Report 8354370-2 (Version None)
Quarter: 2012Q2

REPORT INFORMATION
  Report Type: 
  Country: None (occurrence: None)
  Receive Date: 20120511
  Receipt Date: 20120504
  Transmission Date: 20120825
  Serious: Yes (Hospitalization)
  Sender: FDA-Public Use
  Company Number: US-ABBOTT-12P-163-0932588-00

PATIENT
  Sex: Female
  Weight: 83.99 kg

DRUGS (4)
  1. METHOTREXATE [Suspect]
     Indication: RHEUMATOID ARTHRITIS
     Dates: end: 20100101
  2. HYDROXYCLOROQUINE [Concomitant]
     Indication: RHEUMATOID ARTHRITIS
  3. HUMIRA [Suspect]
     Indication: RHEUMATOID ARTHRITIS
     Dates: start: 20080101, end: 20100101
  4. HYDROCODONE BITARTRATE [Concomitant]
     Indication: RHEUMATOID ARTHRITIS

REACTIONS (5)
  - PNEUMONIA [None]
  - IMMUNODEFICIENCY [None]
  - RESPIRATORY FAILURE [None]
  - PULMONARY OEDEMA [None]
  - MALAISE [None]
